FAERS Safety Report 6071769-8 (Version None)
Quarter: 2009Q1

REPORT INFORMATION
  Report Type: 
  Country: None (occurrence: None)
  Receive Date: 20090210
  Receipt Date: 20081222
  Transmission Date: 20090719
  Serious: No
  Sender: FDA-Public Use
  Company Number: US-BAYER-200841321NA

PATIENT
  Age: 46 Year
  Sex: Female

DRUGS (3)
  1. CLIMARA PRO [Suspect]
     Indication: MENORRHAGIA
     Route: 062
     Dates: start: 20060101
  2. METHOTREXATE [Concomitant]
     Indication: ANKYLOSING SPONDYLITIS
     Dates: start: 20081001
  3. LEVOTHYROXINE [Concomitant]
     Indication: HYPOTHYROIDISM
     Dates: start: 20081001

REACTIONS (4)
  - BREAST TENDERNESS [None]
  - MENORRHAGIA [None]
  - NO ADVERSE EVENT [None]
  - PRODUCT QUALITY ISSUE [None]
